FAERS Safety Report 8811522 (Version 1)
Quarter: 2012Q4

REPORT INFORMATION
  Report Type: Spontaneous
  Country: US (occurrence: None)
  Receive Date: 20120925
  Receipt Date: 20120925
  Transmission Date: 20130627
  Serious: Yes (Life-Threatening, Hospitalization)
  Sender: FDA-Public Use
  Company Number: None

PATIENT
  Age: 73 Year
  Sex: Male
  Weight: 72.7 kg

DRUGS (1)
  1. DOCETAXEL [Suspect]
     Indication: BLADDER CANCER STAGE IV
     Dosage: 140 mg Other IV
     Route: 042
     Dates: start: 20120809, end: 20120809

REACTIONS (6)
  - Feeling hot [None]
  - Flushing [None]
  - Loss of consciousness [None]
  - Infusion related reaction [None]
  - Blood glucose decreased [None]
  - Cardio-respiratory arrest [None]
